FAERS Safety Report 6160225-4 (Version None)
Quarter: 2009Q2

REPORT INFORMATION
  Report Type: 
  Country: None (occurrence: None)
  Receive Date: 20090420
  Receipt Date: 20090414
  Transmission Date: 20091009
  Serious: Yes (Hospitalization, Other)
  Sender: FDA-Public Use
  Company Number: B0566948A

PATIENT
  Sex: Male

DRUGS (8)
  1. SEREVENT [Suspect]
     Dosage: 50MCG TWICE PER DAY
     Route: 055
     Dates: start: 20090316, end: 20090324
  2. CLEANAL [Suspect]
     Dosage: 600MG THREE TIMES PER DAY
     Route: 048
     Dates: start: 20090316, end: 20090324
  3. CLARITH [Suspect]
     Dosage: 200MG PER DAY
     Route: 048
     Dates: start: 20090316, end: 20090324
  4. MUCODYNE [Suspect]
     Dosage: 1500MG THREE TIMES PER DAY
     Route: 048
     Dates: start: 20090316, end: 20090324
  5. MARZULENE [Suspect]
     Dosage: .5G THREE TIMES PER DAY
     Route: 048
     Dates: start: 20090316, end: 20090324
  6. KIPRES [Suspect]
     Dosage: 10MG PER DAY
     Route: 048
     Dates: start: 20090316, end: 20090324
  7. HOKUNALIN [Suspect]
     Dosage: 2MG PER DAY
     Route: 062
     Dates: start: 20090316, end: 20090324
  8. SILODOSIN [Concomitant]
     Indication: DRUG USE FOR UNKNOWN INDICATION
     Route: 048

REACTIONS (9)
  - BRAIN NATRIURETIC PEPTIDE INCREASED [None]
  - CARDIAC FAILURE [None]
  - CARDIOMEGALY [None]
  - CARDIOMYOPATHY [None]
  - DECREASED APPETITE [None]
  - GAIT DISTURBANCE [None]
  - HEPATIC FUNCTION ABNORMAL [None]
  - OXYGEN SATURATION DECREASED [None]
  - PLEURAL EFFUSION [None]
